FAERS Safety Report 5003882-8 (Version None)
Quarter: 2006Q2

REPORT INFORMATION
  Report Type: 
  Country: None (occurrence: None)
  Receive Date: 20060515
  Receipt Date: 20060503
  Transmission Date: 20061013
  Serious: Yes (Disabling)
  Sender: FDA-Public Use
  Company Number: 200610035BFR

PATIENT
  Age: 35 Year
  Sex: Female

DRUGS (1)
  1. CIPROFLOXACIN HCL [Suspect]
     Indication: URINARY TRACT INFECTION
     Dosage: 500 MG, BID, ORAL
     Route: 048
     Dates: start: 20041227, end: 20041231

REACTIONS (11)
  - ANTIBODY TEST POSITIVE [None]
  - ARTHRALGIA [None]
  - COMPLEX REGIONAL PAIN SYNDROME [None]
  - HYPERPATHIA [None]
  - HYPERSENSITIVITY [None]
  - HYPOAESTHESIA [None]
  - INFLAMMATION [None]
  - MONONEURITIS [None]
  - NERVE COMPRESSION [None]
  - NEURALGIA [None]
  - PARALYSIS [None]
